FAERS Safety Report 8566384 (Version 2)
Quarter: 2012Q4

REPORT INFORMATION
  Report Type: 
  Country: JP (occurrence: JP)
  Receive Date: 20120517
  Receipt Date: 20120903
  Transmission Date: 20130627
  Serious: Yes (Other)
  Sender: FDA-Public Use
  Company Number: PHHY2012JP041102

PATIENT
  Age: 63 Year
  Sex: Female
  Weight: 39 kg

DRUGS (17)
  1. ZOMETA [Suspect]
     Indication: METASTASES TO BONE
     Dosage: 4mg (per administration)
     Route: 041
     Dates: start: 20110616
  2. ZOMETA [Suspect]
     Dosage: 4mg (per administration)
     Route: 041
     Dates: start: 20110714
  3. ZOMETA [Suspect]
     Dosage: 4mg (per administration)
     Route: 041
     Dates: start: 20110811
  4. ZOMETA [Suspect]
     Dosage: 4mg (per administration)
     Route: 041
     Dates: start: 20111129
  5. AFINITOR [Concomitant]
     Indication: RENAL CANCER
     Dosage: UNK
     Route: 048
  6. SUTENT [Concomitant]
     Indication: RENAL CANCER
     Dosage: UNK
     Route: 048
  7. NEXAVAR [Concomitant]
     Indication: RENAL CANCER
     Dosage: UNK
     Route: 048
  8. SUMIFERON [Concomitant]
     Dosage: UNK
  9. DUROTEP JANSSEN [Concomitant]
     Dosage: UNK
  10. LOXONIN [Concomitant]
     Dosage: UNK
     Route: 048
  11. MAGLAX [Concomitant]
     Dosage: UNK
  12. GLYCYRON [Concomitant]
     Dosage: UNK
  13. TAKEPRON [Concomitant]
     Dosage: UNK
  14. ADALAT CR [Concomitant]
     Dosage: UNK
     Route: 048
  15. ALESION [Concomitant]
     Dosage: UNK
     Route: 048
  16. SELBEX [Concomitant]
     Dosage: UNK
  17. EURODIN [Concomitant]
     Dosage: UNK
     Route: 048

REACTIONS (10)
  - Periodontitis [Unknown]
  - Gingival bleeding [Unknown]
  - Osteonecrosis of jaw [Not Recovered/Not Resolved]
  - Exposed bone in jaw [Unknown]
  - Primary sequestrum [Unknown]
  - Neoplasm progression [Unknown]
  - Malignant neoplasm progression [Unknown]
  - Metastases to lung [Unknown]
  - Metastases to adrenals [Unknown]
  - Metastases to skin [Unknown]
